FAERS Safety Report 22533967 (Version 1)
Quarter: 2023Q2

REPORT INFORMATION
  Report Type: Spontaneous
  Country: US (occurrence: US)
  Receive Date: 20230608
  Receipt Date: 20230608
  Transmission Date: 20230722
  Serious: Yes (Other)
  Sender: FDA-Public Use
  Company Number: US-MLMSERVICE-20230523-4301308-1

PATIENT
  Age: 65 Year
  Sex: Female

DRUGS (3)
  1. BUPIVACAINE [Suspect]
     Active Substance: BUPIVACAINE
     Indication: Sedation
     Route: 042
  2. LIDOCAINE [Suspect]
     Active Substance: LIDOCAINE
     Indication: Sedation
     Route: 042
  3. HYALURONIDASE [Suspect]
     Active Substance: HYALURONIDASE
     Indication: Sedation
     Dosage: 200 UNITS
     Route: 042

REACTIONS (2)
  - Purtscher retinopathy [Recovering/Resolving]
  - Intraocular pressure fluctuation [Recovering/Resolving]
